FAERS Safety Report 10304258 (Version 2)
Quarter: 2014Q3

REPORT INFORMATION
  Report Type: Spontaneous
  Country: US (occurrence: US)
  Receive Date: 20140714
  Receipt Date: 20140814
  Transmission Date: 20150326
  Serious: No
  Sender: FDA-Public Use
  Company Number: US-009507513-1407USA005309

PATIENT
  Age: 18 Year
  Sex: Female
  Weight: 72.56 kg

DRUGS (1)
  1. IMPLANON [Suspect]
     Active Substance: ETONOGESTREL
     Indication: CONTRACEPTION
     Dosage: 1 ROD FOR 3 YEARS
     Route: 059
     Dates: start: 20111130

REACTIONS (9)
  - Road traffic accident [Unknown]
  - Vomiting [Unknown]
  - Fatigue [Unknown]
  - Abdominal discomfort [Unknown]
  - Dysstasia [Unknown]
  - Device dislocation [Unknown]
  - Somnolence [Unknown]
  - Hunger [Unknown]
  - Unintended pregnancy [Unknown]

NARRATIVE: CASE EVENT DATE: 201405
